FAERS Safety Report 8883565 (Version 1)
Quarter: 2012Q4

REPORT INFORMATION
  Report Type: 
  Country: US (occurrence: US)
  Receive Date: 20121102
  Receipt Date: 20121102
  Transmission Date: 20130627
  Serious: No
  Sender: FDA-Public Use
  Company Number: US-ASTRAZENECA-2012SE02644

PATIENT
  Sex: Female
  Weight: 65.8 kg

DRUGS (5)
  1. CRESTOR [Suspect]
     Indication: BLOOD CHOLESTEROL ABNORMAL
     Dosage: 5 MG AT LUNCH EVERYDAY
     Route: 048
  2. THEOPHYLLINE [Concomitant]
     Indication: ASTHMA
  3. SINGULAIR [Concomitant]
     Indication: ASTHMA
  4. SEREVENT [Concomitant]
     Indication: ASTHMA
  5. MEDICATION FOR HER BRAIN [Concomitant]

REACTIONS (2)
  - Dementia [Unknown]
  - Amnesia [Unknown]
